FAERS Safety Report 8471678-0 (Version None)
Quarter: 2012Q2

REPORT INFORMATION
  Report Type: 
  Country: None (occurrence: None)
  Receive Date: 20120627
  Receipt Date: 20120620
  Transmission Date: 20120825
  Serious: Yes (Hospitalization)
  Sender: FDA-Public Use
  Company Number: US-GLAXOSMITHKLINE-A0875837A

PATIENT
  Age: 73 Year
  Sex: Male

DRUGS (14)
  1. LASIX [Concomitant]
  2. PLAVIX [Concomitant]
  3. POTASSIUM CHLORIDE [Concomitant]
  4. TOPROL-XL [Concomitant]
  5. INSULIN [Concomitant]
  6. AVANDIA [Suspect]
     Indication: DIABETES MELLITUS
     Dosage: 4MG PER DAY
     Route: 048
     Dates: start: 20000713, end: 20071003
  7. ASPIRIN [Concomitant]
  8. COREG [Concomitant]
  9. COLCHICINE [Concomitant]
  10. DIGOXIN [Concomitant]
  11. GLYBURIDE [Concomitant]
  12. FLOMAX [Concomitant]
  13. ALLOPURINOL [Concomitant]
  14. IMDUR [Concomitant]

REACTIONS (10)
  - RENAL ARTERY STENT PLACEMENT [None]
  - CORONARY ANGIOPLASTY [None]
  - RENAL ARTERY STENOSIS [None]
  - RENAL FAILURE CHRONIC [None]
  - CARDIAC FAILURE CONGESTIVE [None]
  - CAROTID ARTERY DISEASE [None]
  - CAROTID ENDARTERECTOMY [None]
  - MYOCARDIAL INFARCTION [None]
  - PERIPHERAL VASCULAR DISORDER [None]
  - CORONARY ARTERIAL STENT INSERTION [None]
